FAERS Safety Report 17747324 (Version 2)
Quarter: 2020Q2

REPORT INFORMATION
  Report Type: Spontaneous
  Country: CA (occurrence: CA)
  Receive Date: 20200505
  Receipt Date: 20200527
  Transmission Date: 20200714
  Serious: Yes (Other)
  Sender: FDA-Public Use
  Company Number: CA-PFIZER INC-2020066603

PATIENT
  Age: 41 Year
  Sex: Female

DRUGS (9)
  1. BLACK CUMIN OIL [Concomitant]
     Dosage: 400 MG, UNK
  2. VITAMIN B12 [MECOBALAMIN] [Concomitant]
     Dosage: UNK
     Route: 065
  3. METHOTREXATE SODIUM. [Suspect]
     Active Substance: METHOTREXATE SODIUM
     Dosage: UNK
     Route: 065
  4. APPLE CIDER VINEGAR [Concomitant]
     Active Substance: APPLE CIDER VINEGAR
     Dosage: UNK
     Route: 065
  5. CURCUMIN [Concomitant]
     Active Substance: CURCUMIN
     Dosage: UNK
     Route: 065
  6. CURCUMIN [Concomitant]
     Active Substance: CURCUMIN
     Dosage: REDUCT 400MG UNK
  7. VITAMIN B [Concomitant]
     Active Substance: VITAMIN B
     Dosage: UNK
     Route: 065
  8. GINGER ROOT [ZINGIBER OFFICINALE ROOT] [Concomitant]
     Dosage: 100 MG, UNK
  9. VITAMIN C [Concomitant]
     Active Substance: ASCORBIC ACID
     Dosage: UNK
     Route: 065

REACTIONS (5)
  - Intestinal haemorrhage [Unknown]
  - Diverticulitis [Recovering/Resolving]
  - Feeling abnormal [Unknown]
  - Pain [Unknown]
  - Infection [Unknown]
